FAERS Safety Report 11827694 (Version 1)
Quarter: 2015Q4

REPORT INFORMATION
  Report Type: Report from Study
  Country: CA (occurrence: CA)
  Receive Date: 20151211
  Receipt Date: 20151211
  Transmission Date: 20160305
  Serious: Yes (Hospitalization, Other)
  Sender: FDA-Public Use
  Company Number: CA-JNJFOC-20151200797

PATIENT
  Age: 66 Year
  Sex: Female
  Weight: 90 kg

DRUGS (21)
  1. METOPROLOL [Concomitant]
     Active Substance: METOPROLOL
     Route: 065
  2. GABAPENTIN. [Concomitant]
     Active Substance: GABAPENTIN
     Route: 065
  3. IRON [Concomitant]
     Active Substance: IRON
     Route: 030
  4. VITAMIN B12 [Concomitant]
     Active Substance: CYANOCOBALAMIN
     Route: 065
  5. REMICADE [Suspect]
     Active Substance: INFLIXIMAB
     Indication: CROHN^S DISEASE
     Route: 042
     Dates: start: 20151204
  6. LANOXIN [Concomitant]
     Active Substance: DIGOXIN
     Route: 065
  7. REMICADE [Suspect]
     Active Substance: INFLIXIMAB
     Indication: CROHN^S DISEASE
     Route: 042
     Dates: start: 20151001
  8. METFORMIN [Concomitant]
     Active Substance: METFORMIN HYDROCHLORIDE
     Route: 065
  9. RAMIPRIL. [Concomitant]
     Active Substance: RAMIPRIL
     Route: 065
  10. NOVOLIN GE [Concomitant]
     Route: 065
  11. LOPERAMIDE [Concomitant]
     Active Substance: LOPERAMIDE
     Route: 065
  12. PANTOLOC [Concomitant]
     Active Substance: PANTOPRAZOLE SODIUM
     Route: 065
  13. VITAMIN D [Concomitant]
     Active Substance: CHOLECALCIFEROL
     Route: 065
  14. 5-ASA [Concomitant]
     Active Substance: MESALAMINE
     Route: 065
  15. DILTIAZEM HYDROCHLORIDE EXTENDED RELEASE [Concomitant]
     Active Substance: DILTIAZEM HYDROCHLORIDE
     Route: 065
  16. TYLENOL [Concomitant]
     Active Substance: ACETAMINOPHEN
     Indication: PREMEDICATION
     Route: 048
  17. ELIQUIS [Concomitant]
     Active Substance: APIXABAN
     Route: 065
  18. BENADRYL [Concomitant]
     Active Substance: DIPHENHYDRAMINE HYDROCHLORIDE
     Indication: PREMEDICATION
     Route: 048
  19. SYNTHROID [Concomitant]
     Active Substance: LEVOTHYROXINE SODIUM
     Route: 065
  20. PREGABALIN. [Concomitant]
     Active Substance: PREGABALIN
     Route: 065
  21. LASIX [Concomitant]
     Active Substance: FUROSEMIDE
     Route: 065

REACTIONS (7)
  - Chest pain [Recovering/Resolving]
  - Flushing [Recovering/Resolving]
  - Pulse abnormal [Recovering/Resolving]
  - Dyspnoea [Recovering/Resolving]
  - Loss of consciousness [Recovering/Resolving]
  - Infusion related reaction [Recovering/Resolving]
  - Arthritis viral [Recovered/Resolved]

NARRATIVE: CASE EVENT DATE: 201510
